FAERS Safety Report 9485639 (Version 1)
Quarter: 2013Q3

REPORT INFORMATION
  Report Type: Other
  Country: JP (occurrence: JP)
  Receive Date: 20130829
  Receipt Date: 20130829
  Transmission Date: 20140515
  Serious: Yes (Hospitalization)
  Sender: FDA-Public Use
  Company Number: JP-BRISTOL-MYERS SQUIBB COMPANY-19202019

PATIENT
  Age: 49 Year
  Sex: Male
  Weight: 98.1 kg

DRUGS (6)
  1. CARBOPLATIN [Suspect]
     Dosage: CYCLE 3.
     Dates: start: 200803
  2. IFOSFAMIDE [Suspect]
     Dosage: CYCLE 3 3.2 MG EVERY 3 DAYS.
  3. ETOPOSIDE [Suspect]
     Indication: STEM CELL TRANSPLANT
     Dosage: CYCLE 3 150 MG EVERY 3 DAYS.?320 MG X4 DAYS-24JUN2008.
     Dates: start: 200803
  4. RANIMUSTINE [Suspect]
     Indication: STEM CELL TRANSPLANT
     Dates: start: 20080624
  5. CYTARABINE [Suspect]
     Indication: STEM CELL TRANSPLANT
     Dosage: 1DF:2G/M2. ?CYCLE3:CYTARABINEX4DAYS.?1CYCLE:6SEP.?2CYCLE:13OCT.?3CYCLE:REDUCEDDOSEBY80%-14DEC.
     Dates: start: 20080624
  6. MELPHALAN [Suspect]
     Indication: STEM CELL TRANSPLANT
     Dates: start: 20080624

REACTIONS (1)
  - Acute megakaryocytic leukaemia [Unknown]
